FAERS Safety Report 6500249-8 (Version None)
Quarter: 2009Q4

REPORT INFORMATION
  Report Type: 
  Country: None (occurrence: None)
  Receive Date: 20091216
  Receipt Date: 20091203
  Transmission Date: 20100525
  Serious: Yes (Death, Hospitalization, Other)
  Sender: FDA-Public Use
  Company Number: AT-PFIZER INC-2009286237

PATIENT
  Age: 54 Year
  Sex: Male

DRUGS (7)
  1. XANOR [Suspect]
     Indication: PANIC ATTACK
     Dosage: 1.25MG/DAY
     Route: 048
     Dates: start: 20090916
  2. XANOR [Suspect]
     Indication: DEPRESSION
  3. TRANXILIUM [Concomitant]
     Indication: NERVOUSNESS
     Dosage: UNK
     Route: 048
     Dates: start: 20090101
  4. CIPRALEX [Concomitant]
     Indication: PANIC ATTACK
     Dosage: 20 MG, 1X/DAY
     Route: 048
  5. CIPRALEX [Concomitant]
     Indication: DEPRESSION
  6. PSYCHOPAX [Concomitant]
     Indication: PANIC ATTACK
  7. PSYCHOPAX [Concomitant]
     Indication: DEPRESSION

REACTIONS (16)
  - ARTERIOSCLEROSIS [None]
  - CARDIOGENIC SHOCK [None]
  - CONFUSIONAL STATE [None]
  - DECREASED APPETITE [None]
  - DEPRESSION [None]
  - DYSPNOEA [None]
  - HAEMOTHORAX [None]
  - HALLUCINATION [None]
  - LOSS OF CONSCIOUSNESS [None]
  - MYDRIASIS [None]
  - MYOCARDIAL INFARCTION [None]
  - PERSONALITY CHANGE [None]
  - RIB FRACTURE [None]
  - SKULL FRACTURED BASE [None]
  - VENTRICULAR FIBRILLATION [None]
  - WEIGHT DECREASED [None]
